FAERS Safety Report 25893212 (Version 1)
Quarter: 2025Q4

REPORT INFORMATION
  Report Type: Spontaneous
  Country: EU (occurrence: EU)
  Receive Date: 20251008
  Receipt Date: 20251008
  Transmission Date: 20260117
  Serious: Yes (Other)
  Sender: EMD SERONO INC
  Company Number: None

PATIENT
  Age: 63 Year
  Sex: Female
  Weight: 54 kg

DRUGS (3)
  1. EUTHYROX [Suspect]
     Active Substance: LEVOTHYROXINE SODIUM
     Indication: Hypothyroidism
  2. REPATHA [Suspect]
     Active Substance: EVOLOCUMAB
     Indication: Blood cholesterol increased
     Dates: start: 2023, end: 202509
  3. REPATHA [Suspect]
     Active Substance: EVOLOCUMAB
     Indication: Hypertension

REACTIONS (3)
  - Body height decreased [Not Recovered/Not Resolved]
  - Osteoporosis [Not Recovered/Not Resolved]
  - Abnormal loss of weight [Recovered/Resolved with Sequelae]

NARRATIVE: CASE EVENT DATE: 20230601
